FAERS Safety Report 5172384-0 (Version None)
Quarter: 2006Q4

REPORT INFORMATION
  Report Type: 
  Country: None (occurrence: None)
  Receive Date: 20061213
  Receipt Date: 20060710
  Transmission Date: 20070319
  Serious: Yes (Other)
  Sender: FDA-Public Use
  Company Number: JP-MERCK-0608USA02317

PATIENT
  Age: 71 Year
  Sex: Male

DRUGS (5)
  1. COZAAR [Suspect]
     Indication: HYPERTENSION
     Route: 048
     Dates: start: 20060421, end: 20060522
  2. EUGLUCON [Concomitant]
     Route: 048
  3. WARFARIN POTASSIUM [Concomitant]
     Route: 048
  4. TENORMIN [Concomitant]
     Route: 048
  5. LASIX [Concomitant]
     Route: 048

REACTIONS (1)
  - PHOTOPHOBIA [None]
